FAERS Safety Report 24381833 (Version 1)
Quarter: 2024Q4

REPORT INFORMATION
  Report Type: Spontaneous
  Country: FR (occurrence: FR)
  Receive Date: 20241001
  Receipt Date: 20241001
  Transmission Date: 20250115
  Serious: Yes (Other)
  Sender: RANBAXY
  Company Number: FR-AFSSAPS-MA2024001240

PATIENT
  Age: 74 Year
  Sex: Male

DRUGS (1)
  1. OMEPRAZOLE [Suspect]
     Active Substance: OMEPRAZOLE
     Indication: Gastrointestinal mucosal disorder
     Dosage: 1 DOSAGE FORM, IN TOTAL
     Route: 048
     Dates: start: 202211

REACTIONS (1)
  - Rash maculo-papular [Recovered/Resolved]

NARRATIVE: CASE EVENT DATE: 20221101
